FAERS Safety Report 6859648-7 (Version None)
Quarter: 2010Q3

REPORT INFORMATION
  Report Type: 
  Country: None (occurrence: None)
  Receive Date: 20100719
  Receipt Date: 20080515
  Transmission Date: 20110219
  Serious: No
  Sender: FDA-Public Use
  Company Number: US-PFIZER INC-2008019666

PATIENT
  Sex: Female
  Weight: 44.91 kg

DRUGS (3)
  1. CHANTIX [Suspect]
     Indication: SMOKING CESSATION THERAPY
     Route: 048
     Dates: start: 20080101, end: 20080201
  2. PROVENTIL TABLET [Concomitant]
  3. MONTELUKAST SODIUM [Concomitant]

REACTIONS (2)
  - FORMICATION [None]
  - PRURITUS [None]
